FAERS Safety Report 4501826-6 (Version None)
Quarter: 2004Q4

REPORT INFORMATION
  Report Type: 
  Country: None (occurrence: None)
  Receive Date: 20041109
  Receipt Date: 20041021
  Transmission Date: 20050328
  Serious: Yes (Life-Threatening, Hospitalization, Other)
  Sender: FDA-Public Use
  Company Number: US_020988090

PATIENT
  Age: 71 Year
  Sex: Male

DRUGS (2)
  1. GEMZAR [Suspect]
     Indication: PANCREATIC CARCINOMA
     Dosage: 300 MG/M2 OTHER
     Route: 050
     Dates: start: 20010801
  2. RADIATION THERAPY [Concomitant]

REACTIONS (4)
  - LACUNAR INFARCTION [None]
  - METASTASES TO LIVER [None]
  - NEUTROPENIA [None]
  - PLATELET COUNT DECREASED [None]
